FAERS Safety Report 16267528 (Version 1)
Quarter: 2019Q2

REPORT INFORMATION
  Report Type: Report from Study
  Country: US (occurrence: US)
  Receive Date: 20190503
  Receipt Date: 20190503
  Transmission Date: 20190711
  Serious: Yes (Hospitalization)
  Sender: FDA-Public Use
  Company Number: US-BIOGEN-2019BI00731354

PATIENT
  Sex: Female

DRUGS (1)
  1. TYSABRI [Suspect]
     Active Substance: NATALIZUMAB
     Indication: MULTIPLE SCLEROSIS
     Route: 042

REACTIONS (7)
  - Vomiting [Unknown]
  - Blood potassium decreased [Unknown]
  - Retinal scar [Unknown]
  - Blood magnesium decreased [Unknown]
  - Depressed mood [Unknown]
  - Dehydration [Unknown]
  - Nausea [Unknown]
